FAERS Safety Report 9822020 (Version 4)
Quarter: 2014Q1

REPORT INFORMATION
  Report Type: Spontaneous
  Country: DE (occurrence: DE)
  Receive Date: 20140116
  Receipt Date: 20140207
  Transmission Date: 20141002
  Serious: Yes (Hospitalization)
  Sender: FDA-Public Use
  Company Number: DE-JNJFOC-20140106847

PATIENT
  Age: 55 Year
  Sex: Female
  Weight: 85 kg

DRUGS (6)
  1. SIMPONI [Suspect]
     Indication: PSORIATIC ARTHROPATHY
     Route: 058
     Dates: start: 201208
  2. SIMPONI [Suspect]
     Indication: PSORIATIC ARTHROPATHY
     Route: 058
     Dates: start: 201401
  3. SIMPONI [Suspect]
     Indication: PSORIATIC ARTHROPATHY
     Route: 058
     Dates: start: 201304, end: 201312
  4. JODTHYROX [Suspect]
     Indication: HYPOTHYROIDISM
     Dosage: 100
     Route: 048
  5. FENTANYL [Concomitant]
     Dosage: EVEYR THIRD DAY
     Route: 065
  6. MIRTAZAPINE [Concomitant]
     Dosage: 1/2 TAB DAILY IN THE EVENING
     Route: 065

REACTIONS (2)
  - Biliary tract operation [Unknown]
  - Ventricular extrasystoles [Unknown]
